FAERS Safety Report 6143380-1 (Version None)
Quarter: 2009Q2

REPORT INFORMATION
  Report Type: 
  Country: None (occurrence: None)
  Receive Date: 20090403
  Receipt Date: 20090330
  Transmission Date: 20091009
  Serious: Yes (Death)
  Sender: FDA-Public Use
  Company Number: JP-AVENTIS-200812969JP

PATIENT
  Age: 82 Year
  Sex: Male

DRUGS (3)
  1. CLAFORAN [Suspect]
     Dosage: DOSE: 1 G / BOTTLE
     Route: 041
     Dates: start: 20070701, end: 20070701
  2. ALEVIATIN [Suspect]
  3. UNKNOWN DRUG [Suspect]
     Dates: start: 20070701, end: 20070701

REACTIONS (1)
  - TOXIC EPIDERMAL NECROLYSIS [None]
